FAERS Safety Report 15270673 (Version 1)
Quarter: 2018Q3

REPORT INFORMATION
  Report Type: Spontaneous
  Country: US (occurrence: US)
  Receive Date: 20180726
  Receipt Date: 20180726
  Transmission Date: 20181010
  Serious: Yes (Disabling)
  Sender: FDA-Public Use
  Company Number: None

PATIENT
  Age: 33 Year
  Sex: Female
  Weight: 62.1 kg

DRUGS (9)
  1. ADDERALL [Concomitant]
     Active Substance: AMPHETAMINE ASPARTATE\AMPHETAMINE SULFATE\DEXTROAMPHETAMINE SACCHARATE\DEXTROAMPHETAMINE SULFATE
  2. D3 VITAMINS [Concomitant]
  3. PROBIOTICS [Concomitant]
     Active Substance: PROBIOTICS NOS
  4. GLUTASHIELD [Concomitant]
  5. MAGNESIUM [Concomitant]
     Active Substance: MAGNESIUM
  6. VITAMIN B12 [Concomitant]
     Active Substance: CYANOCOBALAMIN
  7. CIPROFLOXACIN HCL 500 MG TAB, GENERIC FOR: CIPRO 500 MG TABLET [Suspect]
     Active Substance: CIPROFLOXACIN HYDROCHLORIDE
     Indication: URINARY TRACT INFECTION
     Dosage: ?          QUANTITY:1 DF DOSAGE FORM;?
     Route: 048
     Dates: start: 20180606, end: 20180607
  8. MELATONIN [Concomitant]
     Active Substance: MELATONIN
  9. LO LOESTRIN FE [Concomitant]
     Active Substance: ETHINYL ESTRADIOL\NORETHINDRONE ACETATE

REACTIONS (11)
  - Muscular weakness [None]
  - Back pain [None]
  - Paraesthesia [None]
  - Musculoskeletal stiffness [None]
  - Tendon discomfort [None]
  - Tremor [None]
  - Loss of personal independence in daily activities [None]
  - Arthralgia [None]
  - Fatigue [None]
  - Insomnia [None]
  - Dysstasia [None]

NARRATIVE: CASE EVENT DATE: 20180607
